FAERS Safety Report 22599159 (Version 1)
Quarter: 2023Q2

REPORT INFORMATION
  Report Type: Spontaneous
  Country: NL (occurrence: NL)
  Receive Date: 20230614
  Receipt Date: 20230614
  Transmission Date: 20230721
  Serious: Yes (Hospitalization)
  Sender: FDA-Public Use
  Company Number: NL-AMAROX PHARMA-AMR2023NL01599

PATIENT
  Age: 48 Year
  Sex: Female

DRUGS (5)
  1. ARIPIPRAZOLE [Suspect]
     Active Substance: ARIPIPRAZOLE
     Indication: Suicide attempt
     Dosage: 630 MILLIGRAM
     Route: 065
  2. LITHIUM [Suspect]
     Active Substance: LITHIUM
     Indication: Suicide attempt
     Dosage: 21 GRAM
     Route: 065
  3. NORTRIPTYLINE [Suspect]
     Active Substance: NORTRIPTYLINE
     Indication: Suicide attempt
     Dosage: 3675 MILLIGRAM
     Route: 065
  4. LORAZEPAM [Suspect]
     Active Substance: LORAZEPAM
     Indication: Suicide attempt
     Dosage: 21 MILLIGRAM
     Route: 065
  5. TEMAZEPAM [Suspect]
     Active Substance: TEMAZEPAM
     Indication: Suicide attempt
     Dosage: 410 MILLIGRAM
     Route: 065

REACTIONS (2)
  - Toxicity to various agents [Unknown]
  - Intentional overdose [Unknown]
